FAERS Safety Report 18413174 (Version 2)
Quarter: 2025Q1

REPORT INFORMATION
  Report Type: Report from Study
  Country: US (occurrence: US)
  Receive Date: 20201021
  Receipt Date: 20250106
  Transmission Date: 20250409
  Serious: Yes (Other)
  Sender: GILEAD
  Company Number: US-GILEAD-2020-0500473

PATIENT
  Age: 76 Year

DRUGS (1)
  1. AXICABTAGENE CILOLEUCEL [Suspect]
     Active Substance: AXICABTAGENE CILOLEUCEL
     Indication: Richter^s syndrome
     Route: 042

REACTIONS (2)
  - Richter^s syndrome [Unknown]
  - Cytokine release syndrome [Unknown]
